FAERS Safety Report 9575097 (Version 5)
Quarter: 2014Q1

REPORT INFORMATION
  Report Type: Report from Study
  Country: CA (occurrence: CA)
  Receive Date: 20131001
  Receipt Date: 20140207
  Transmission Date: 20141002
  Serious: Yes (Other)
  Sender: FDA-Public Use
  Company Number: CA-UCBSA-095031

PATIENT
  Age: 54 Year
  Sex: Male
  Weight: 84 kg

DRUGS (7)
  1. CIMZIA [Suspect]
     Indication: RHEUMATOID ARTHRITIS
     Dosage: 200 MG Q 2 WEEKS, LOT NO. 104577 WITH EXP DATE: JAN-2015
     Route: 058
     Dates: start: 20130708, end: 20131230
  2. CIMZIA [Suspect]
     Indication: RHEUMATOID ARTHRITIS
     Dosage: 400 MG Q 2 WEEKS
     Route: 058
     Dates: start: 20130527, end: 20130624
  3. RAMIPRIL [Concomitant]
     Indication: BLOOD PRESSURE
     Route: 048
     Dates: start: 201309
  4. AMLODIPINE [Concomitant]
     Indication: BLOOD PRESSURE
     Route: 048
     Dates: start: 201309
  5. DILAUDID [Concomitant]
  6. DILAUDID [Concomitant]
     Dosage: EVERY 3-4 HOURS, AS REQUIRED
  7. PREDNISONE [Concomitant]
     Dates: end: 201310

REACTIONS (7)
  - Limb crushing injury [Recovering/Resolving]
  - Hypertension [Not Recovered/Not Resolved]
  - Hypoaesthesia [Not Recovered/Not Resolved]
  - Injection site bruising [Unknown]
  - Musculoskeletal pain [Not Recovered/Not Resolved]
  - Insomnia [Unknown]
  - Drug ineffective [Recovered/Resolved]
